FAERS Safety Report 8239661-8 (Version None)
Quarter: 2012Q1

REPORT INFORMATION
  Report Type: 
  Country: None (occurrence: None)
  Receive Date: 20120309
  Receipt Date: 20100409
  Transmission Date: 20120608
  Serious: Yes (Other)
  Sender: FDA-Public Use
  Company Number: PHHY2010US12988

PATIENT
  Age: 65 Year
  Sex: Female

DRUGS (7)
  1. CYMBALTA [Concomitant]
  2. BACLOFEN [Concomitant]
  3. ELAVIL [Concomitant]
  4. REBIF [Concomitant]
  5. IBUPROFEN (ADVIL) [Concomitant]
  6. EXTAVIA [Suspect]
     Indication: MULTIPLE SCLEROSIS
     Dosage: 0.0625 MG, QOD, SUBCUTANEOUS ; 0.25 MG, QOD, SUBCUTANEOUS
     Route: 058
     Dates: start: 20100302
  7. EXTAVIA [Suspect]
     Indication: MULTIPLE SCLEROSIS
     Dosage: 0.0625 MG, QOD, SUBCUTANEOUS ; 0.25 MG, QOD, SUBCUTANEOUS
     Route: 058
     Dates: start: 20100302

REACTIONS (3)
  - PYREXIA [None]
  - INJECTION SITE REACTION [None]
  - DEPRESSION [None]
